FAERS Safety Report 4906258-4 (Version None)
Quarter: 2006Q1

REPORT INFORMATION
  Report Type: 
  Country: None (occurrence: None)
  Receive Date: 20060202
  Receipt Date: 20060119
  Transmission Date: 20060701
  Serious: Yes (Other)
  Sender: FDA-Public Use
  Company Number: 603740

PATIENT
  Age: 13 Year
  Sex: Male

DRUGS (2)
  1. HEMOFIL (FACTOR VIII (ANTIHAEMOPHILIC FACTOR)) [Suspect]
     Indication: HAEMOPHILIA
     Dates: start: 19800101
  2. PROPLEX T (FACTOR IX COMPLEX HUMAN) [Suspect]
     Indication: HAEMOPHILIA

REACTIONS (3)
  - HEPATITIS [None]
  - PHARMACEUTICAL PRODUCT COMPLAINT [None]
  - POOR QUALITY DRUG ADMINISTERED [None]
